FAERS Safety Report 9510061 (Version 1)
Quarter: 2013Q3

REPORT INFORMATION
  Report Type: Spontaneous
  Country: US (occurrence: US)
  Receive Date: 20130909
  Receipt Date: 20130909
  Transmission Date: 20140515
  Serious: No
  Sender: FDA-Public Use
  Company Number: US-BRISTOL-MYERS SQUIBB COMPANY-17134925

PATIENT
  Age: 12 Year
  Sex: Female

DRUGS (3)
  1. ABILIFY TABS [Suspect]
     Dates: start: 201203
  2. ZOLOFT [Concomitant]
  3. RITALIN [Concomitant]

REACTIONS (1)
  - Aggression [Unknown]
